FAERS Safety Report 11238714 (Version 2)
Quarter: 2015Q3

REPORT INFORMATION
  Report Type: Report from Study
  Country: MX (occurrence: MX)
  Receive Date: 20150706
  Receipt Date: 20150807
  Transmission Date: 20151125
  Serious: Yes (Death, Other)
  Sender: FDA-Public Use
  Company Number: PHHY2015MX073465

PATIENT
  Age: 48 Year
  Sex: Female
  Weight: 60 kg

DRUGS (8)
  1. AFINITOR [Suspect]
     Active Substance: EVEROLIMUS
     Indication: PANCREATIC CARCINOMA METASTATIC
     Dosage: 10 MG, UNK
     Route: 048
     Dates: start: 20130326, end: 20150610
  2. METOCLOPRAMIDE. [Concomitant]
     Active Substance: METOCLOPRAMIDE
     Indication: PRODUCT USED FOR UNKNOWN INDICATION
     Dosage: UNK UNK, Q8H (EVERY 8 HOURS)
     Route: 048
  3. SANDOSTATIN [Concomitant]
     Active Substance: OCTREOTIDE ACETATE
     Dosage: 40 MG, UNK
     Route: 030
     Dates: start: 20121017
  4. INSULIN H NPH [Concomitant]
     Indication: PRODUCT USED FOR UNKNOWN INDICATION
     Route: 058
     Dates: start: 20130314, end: 20150615
  5. AFINITOR [Suspect]
     Active Substance: EVEROLIMUS
     Indication: PRIMITIVE NEUROECTODERMAL TUMOUR
  6. SANDOSTATIN [Concomitant]
     Active Substance: OCTREOTIDE ACETATE
     Dosage: 20 MG, UNK
     Route: 030
     Dates: start: 20130326, end: 20150506
  7. OCTREOTIDE. [Concomitant]
     Active Substance: OCTREOTIDE
     Indication: PANCREATIC CARCINOMA METASTATIC
     Route: 065
  8. SANDOSTATIN [Concomitant]
     Active Substance: OCTREOTIDE ACETATE
     Indication: DIABETES MELLITUS
     Dosage: 20 MG, UNK
     Route: 030
     Dates: start: 20120425

REACTIONS (19)
  - Metastases to liver [Unknown]
  - Asthenia [Unknown]
  - Malignant neoplasm progression [Fatal]
  - Abdominal distension [Unknown]
  - Nausea [Unknown]
  - Rash [Recovered/Resolved]
  - Diarrhoea [Recovered/Resolved]
  - Mucosal inflammation [Recovered/Resolved]
  - Vomiting [Unknown]
  - Abdominal pain [Unknown]
  - Pallor [Unknown]
  - Blood alkaline phosphatase increased [Fatal]
  - Back pain [Unknown]
  - Dry skin [Unknown]
  - Jaundice [Unknown]
  - Decreased appetite [Unknown]
  - Osteoarthritis [Unknown]
  - General physical health deterioration [Unknown]
  - Abdominal pain upper [Unknown]

NARRATIVE: CASE EVENT DATE: 20130326
